FAERS Safety Report 7179489-3 (Version None)
Quarter: 2010Q4

REPORT INFORMATION
  Report Type: 
  Country: None (occurrence: None)
  Receive Date: 20101221
  Receipt Date: 20101213
  Transmission Date: 20110411
  Serious: No
  Sender: FDA-Public Use
  Company Number: GB-ASTRAZENECA-2010SE59208

PATIENT
  Sex: Female

DRUGS (4)
  1. SEROQUEL XR [Suspect]
     Indication: BIPOLAR DISORDER
     Route: 048
  2. CITALOPRAM [Concomitant]
  3. LEVOTHYROXINE [Concomitant]
  4. ZOPICLONE [Concomitant]

REACTIONS (1)
  - LYMPHOCYTE COUNT DECREASED [None]
